FAERS Safety Report 13455925 (Version 1)
Quarter: 2017Q2

REPORT INFORMATION
  Report Type: Report from Study
  Country: FI (occurrence: FI)
  Receive Date: 20170419
  Receipt Date: 20170419
  Transmission Date: 20170830
  Serious: Yes (Hospitalization)
  Sender: FDA-Public Use
  Company Number: FI-ROCHE-1062783

PATIENT
  Age: 61 Year
  Sex: Female
  Weight: 76 kg

DRUGS (4)
  1. TRASTUZUMAB [Suspect]
     Active Substance: TRASTUZUMAB
     Dosage: LOADING DOSE.
     Route: 042
     Dates: start: 20090415, end: 20090415
  2. TRASTUZUMAB [Suspect]
     Active Substance: TRASTUZUMAB
     Indication: HER-2 POSITIVE BREAST CANCER
     Dosage: RECENT DOSE OF TRASTUZUMAB PRIOR TO EVENT WAS TAKEN ON 03/APR/2012, ??MAINTAINANCE DOSE.
     Route: 042
     Dates: start: 20090506
  3. PERTUZUMAB [Suspect]
     Active Substance: PERTUZUMAB
     Indication: HER-2 POSITIVE BREAST CANCER
     Dosage: LOADING DOSE
     Route: 042
     Dates: start: 20090415, end: 20090415
  4. PERTUZUMAB [Suspect]
     Active Substance: PERTUZUMAB
     Dosage: RECENT DOSE OF PERTUZUMAB PRIOR TO EVENT WAS TAKEN ON 03/APR/2012 ??MAINTAINACE DOSE
     Route: 042
     Dates: start: 20090506

REACTIONS (1)
  - Enteritis [Recovered/Resolved]

NARRATIVE: CASE EVENT DATE: 20120413
